FAERS Safety Report 6290743-X (Version None)
Quarter: 2009Q3

REPORT INFORMATION
  Report Type: 
  Country: None (occurrence: None)
  Receive Date: 20090730
  Receipt Date: 20090723
  Transmission Date: 20100115
  Serious: Yes (Death, Hospitalization)
  Sender: FDA-Public Use
  Company Number: US-AVENTIS-200812831US

PATIENT
  Sex: Female

DRUGS (11)
  1. KETEK [Suspect]
     Dosage: DOSE: TWO AT NIGHT
     Dates: start: 20051028, end: 20051106
  2. KETEK [Suspect]
     Dates: start: 20060323, end: 20060329
  3. KETEK [Suspect]
     Indication: BRONCHITIS
     Dosage: DOSE: TWO AT NIGHT
     Dates: start: 20051028, end: 20051106
  4. KETEK [Suspect]
     Dates: start: 20060323, end: 20060329
  5. PROZAC [Concomitant]
     Dosage: DOSE: UNK
  6. COZAAR [Concomitant]
     Dosage: DOSE: UNK
  7. NAMENDA [Concomitant]
     Dosage: DOSE: UNK
  8. ZITHROMAX [Concomitant]
     Dosage: DOSE: UNK
     Dates: start: 20050101, end: 20050101
  9. FLONASE [Concomitant]
     Dosage: DOSE: UNK
  10. MUCINEX DM [Concomitant]
     Dosage: DOSE: UNK
  11. LEVOTHYROXINE SODIUM [Concomitant]
     Dosage: DOSE: UNK

REACTIONS (17)
  - AMMONIA INCREASED [None]
  - ASCITES [None]
  - ASTHENIA [None]
  - DECREASED APPETITE [None]
  - FATIGUE [None]
  - HEPATIC CIRRHOSIS [None]
  - HEPATIC ENZYME INCREASED [None]
  - HEPATIC FAILURE [None]
  - HEPATITIS [None]
  - INTERNATIONAL NORMALISED RATIO DECREASED [None]
  - JAUNDICE [None]
  - MOBILITY DECREASED [None]
  - NAUSEA [None]
  - PROTHROMBIN TIME PROLONGED [None]
  - VISION BLURRED [None]
  - VOMITING [None]
  - WHITE BLOOD CELL COUNT INCREASED [None]
